FAERS Safety Report 23594394 (Version 2)
Quarter: 2024Q1

REPORT INFORMATION
  Report Type: Spontaneous
  Country: PL (occurrence: PL)
  Receive Date: 20240305
  Receipt Date: 20240312
  Transmission Date: 20240410
  Serious: Yes (Life-Threatening, Hospitalization)
  Sender: FDA-Public Use
  Company Number: PL-CELLTRION HEALTHCARE HUNGARY KFT-2023PL019071

PATIENT
  Age: 82 Year
  Sex: Female
  Weight: 53.5 kg

DRUGS (7)
  1. LENALIDOMIDE [Suspect]
     Active Substance: LENALIDOMIDE
     Indication: Follicular lymphoma
     Dosage: 10 MILLIGRAM, ONCE A DAY, 10 MG, QD ON DAYS 1 TO 21 FOR 12 CYCLES
     Route: 048
     Dates: start: 20230615
  2. LENALIDOMIDE [Suspect]
     Active Substance: LENALIDOMIDE
     Dosage: 10 MILLIGRAM, ONCE A DAY (ON DAYS 1 TO 21 FOR 12 CYCLES (PRIOR TO THE EVENT UPPER RESPIRATORY INFECT
     Route: 048
     Dates: start: 20230919
  3. LENALIDOMIDE [Suspect]
     Active Substance: LENALIDOMIDE
     Dosage: 10 MILLIGRAM, ONCE A DAY (ON DAYS 1 TO 21 FOR 12 CYCLES (PRIOR TO THE EVENT ABDOMINAL PAIN)
     Route: 048
     Dates: start: 20230921
  4. TAFASITAMAB [Suspect]
     Active Substance: TAFASITAMAB
     Indication: Follicular lymphoma
     Dosage: 12 MILLIGRAM/KILOGRAM, EVERY WEEK,12 MG/KG FOR 12 CYCLES WEEKLY THE FIRST 3 CYCLES AND Q2W THEREAFTE
     Route: 042
     Dates: start: 20230615
  5. TAFASITAMAB [Suspect]
     Active Substance: TAFASITAMAB
     Dosage: 12 MILLIGRAM/KILOGRAM, EVERY WEEK, 12 MG/KG FOR 12 CYCLES WEEKLY THE FIRST 3 CYCLES AND Q2W THEREAFT
     Route: 065
     Dates: start: 20230906
  6. RITUXIMAB [Suspect]
     Active Substance: RITUXIMAB
     Indication: Follicular lymphoma
     Dosage: 375 MILLIGRAM/SQ. METER,  (579MG) FOR 5 CYCLES
     Route: 042
     Dates: start: 20230615
  7. RITUXIMAB [Suspect]
     Active Substance: RITUXIMAB
     Dosage: 375 MILLIGRAM/SQ. METER (572MG) FOR 5 CYCLES (LAST DOSE PRIOR TO THE SERIOUS ADVERSE EVENTS)
     Route: 042
     Dates: start: 20230906

REACTIONS (4)
  - Viral upper respiratory tract infection [Recovered/Resolved]
  - Upper respiratory tract infection [Not Recovered/Not Resolved]
  - Constipation [Recovering/Resolving]
  - Abdominal pain [Recovered/Resolved]

NARRATIVE: CASE EVENT DATE: 20230920
